FAERS Safety Report 8778396 (Version 1)
Quarter: 2012Q4

REPORT INFORMATION
  Report Type: 
  Country: US (occurrence: US)
  Receive Date: 20120911
  Receipt Date: 20120911
  Transmission Date: 20130627
  Serious: Yes (Other)
  Sender: FDA-Public Use
  Company Number: US-009507513-2012SP019831

PATIENT

DRUGS (5)
  1. PEG-INTRON [Suspect]
     Indication: HEPATITIS C
     Dosage: UNK UNK
     Route: 065
     Dates: start: 20100101, end: 20100531
  2. PEG-INTRON [Suspect]
     Dosage: UNK UNK
     Dates: start: 20120309
  3. REBETOL [Suspect]
     Indication: HEPATITIS C
     Dosage: UNK UNK
     Route: 065
     Dates: start: 20100101, end: 20100531
  4. REBETOL [Suspect]
     Dosage: UNK UNK
     Route: 065
     Dates: start: 20120309
  5. VICTRELIS [Suspect]
     Indication: HEPATITIS C
     Dosage: UNK
     Dates: start: 20120408

REACTIONS (6)
  - Weight decreased [Unknown]
  - Nail discolouration [Unknown]
  - Onychomadesis [Unknown]
  - Mood swings [Unknown]
  - Therapeutic product ineffective [Unknown]
  - Depression [Unknown]
